FAERS Safety Report 14998232 (Version 2)
Quarter: 2018Q2

REPORT INFORMATION
  Report Type: Not Available
  Country: US (occurrence: US)
  Receive Date: 20180611
  Receipt Date: 20180625
  Transmission Date: 20180711
  Serious: No
  Sender: FDA-Public Use
  Company Number: US-NEUROCRINE BIOSCIENCES INC.-2018NBI01734

PATIENT
  Age: 59 Year
  Sex: Female

DRUGS (16)
  1. ESCITALOPRAM [Concomitant]
     Active Substance: ESCITALOPRAM OXALATE
  2. GLYCOLAX [Concomitant]
     Active Substance: POLYETHYLENE GLYCOL 3350
  3. LISINOPRIL. [Concomitant]
     Active Substance: LISINOPRIL
     Indication: HYPERTENSION
  4. CLOZAPINE. [Concomitant]
     Active Substance: CLOZAPINE
     Dosage: IN THE MORNING AND IN THE AFTERNOON
     Dates: end: 20180506
  5. POTASSIUM SUPPLEMENT [Concomitant]
     Active Substance: POTASSIUM
  6. MULTIVITAMIN [Concomitant]
     Active Substance: VITAMINS
  7. FIBERLAX [Concomitant]
  8. OMEPRAZOLE. [Concomitant]
     Active Substance: OMEPRAZOLE
     Indication: GASTROOESOPHAGEAL REFLUX DISEASE
  9. ASPIRIN. [Concomitant]
     Active Substance: ASPIRIN
  10. N-ACETYLCYSTINE [Concomitant]
     Active Substance: ACETYLCYSTEINE
  11. SUCRALFATE. [Concomitant]
     Active Substance: SUCRALFATE
     Indication: GASTRIC DISORDER
  12. INGREZZA [Suspect]
     Active Substance: VALBENAZINE
     Indication: DYSKINESIA
     Route: 048
     Dates: start: 20180503, end: 20180508
  13. NUPLAZID [Concomitant]
     Active Substance: PIMAVANSERIN TARTRATE
  14. MEMANTINE. [Concomitant]
     Active Substance: MEMANTINE
  15. ALLOPURINOL. [Concomitant]
     Active Substance: ALLOPURINOL
  16. CLOZAPINE. [Concomitant]
     Active Substance: CLOZAPINE
     Dosage: IN THE MORNING AND IN THE AFTERNOON
     Dates: start: 20180507

REACTIONS (2)
  - Moaning [Recovered/Resolved]
  - Akathisia [Recovered/Resolved]

NARRATIVE: CASE EVENT DATE: 20180505
